FAERS Safety Report 22533178 (Version 1)
Quarter: 2023Q2

REPORT INFORMATION
  Report Type: Spontaneous
  Country: JP (occurrence: JP)
  Receive Date: 20230607
  Receipt Date: 20230607
  Transmission Date: 20230722
  Serious: No
  Sender: FDA-Public Use
  Company Number: JP-MSD-M2023-21516

PATIENT
  Age: 10 Decade
  Sex: Male

DRUGS (1)
  1. LAGEVRIO [Suspect]
     Active Substance: MOLNUPIRAVIR
     Indication: COVID-19 treatment
     Dosage: UNK
     Route: 048
     Dates: start: 20230531

REACTIONS (2)
  - Accidental overdose [Unknown]
  - No adverse event [Unknown]

NARRATIVE: CASE EVENT DATE: 20230101
